FAERS Safety Report 11393614 (Version 1)
Quarter: 2015Q3

REPORT INFORMATION
  Report Type: Spontaneous
  Country: US (occurrence: US)
  Receive Date: 20150819
  Receipt Date: 20150819
  Transmission Date: 20151125
  Serious: Yes (Other)
  Sender: FDA-Public Use
  Company Number: US-ROCHE-1622105

PATIENT
  Sex: Female
  Weight: 83.08 kg

DRUGS (1)
  1. ESBRIET [Suspect]
     Active Substance: PIRFENIDONE
     Indication: PRODUCT USED FOR UNKNOWN INDICATION
     Dosage: 2403 MG DAILY, 3 CAPS PO TID
     Route: 048
     Dates: start: 20150219

REACTIONS (3)
  - Cough [Unknown]
  - Bronchitis [Unknown]
  - Nausea [Unknown]
